FAERS Safety Report 10456886 (Version 5)
Quarter: 2014Q4

REPORT INFORMATION
  Report Type: Report from Study
  Country: US (occurrence: US)
  Receive Date: 20140916
  Receipt Date: 20141114
  Transmission Date: 20150528
  Serious: Yes (Death, Hospitalization)
  Sender: FDA-Public Use
  Company Number: US-ACTELION-A-NJ2014-105063

PATIENT
  Age: 53 Year
  Sex: Female

DRUGS (4)
  1. VELETRI [Suspect]
     Active Substance: EPOPROSTENOL
     Indication: COR PULMONALE CHRONIC
     Dosage: 38.5 NG/KG, PER MIN
     Route: 041
     Dates: start: 20131020, end: 20141019
  2. LETAIRIS [Suspect]
     Active Substance: AMBRISENTAN
     Indication: PRODUCT USED FOR UNKNOWN INDICATION
     Dosage: 10 MG, QD
     Route: 065
     Dates: start: 20090331
  3. ASPIRIN. [Concomitant]
     Active Substance: ASPIRIN
  4. ADCIRCA [Concomitant]
     Active Substance: TADALAFIL

REACTIONS (11)
  - Abdominal pain [Fatal]
  - Device breakage [Unknown]
  - Intestinal infarction [Fatal]
  - Intestinal ischaemia [Fatal]
  - Catheter site erythema [Unknown]
  - Wound treatment [Unknown]
  - Pericardial effusion [Unknown]
  - Fall [Unknown]
  - Hepatic failure [Unknown]
  - Renal failure [Unknown]
  - Overdose [Unknown]

NARRATIVE: CASE EVENT DATE: 20141019
